FAERS Safety Report 7491723-9 (Version None)
Quarter: 2011Q2

REPORT INFORMATION
  Report Type: 
  Country: None (occurrence: None)
  Receive Date: 20110519
  Receipt Date: 20110504
  Transmission Date: 20111010
  Serious: Yes (Other)
  Sender: FDA-Public Use
  Company Number: GB-BAYER-2011-039970

PATIENT
  Age: 18 Month
  Sex: Male

DRUGS (2)
  1. NYSTATIN [Suspect]
     Dosage: 1 ML, QID
     Route: 048
     Dates: start: 20110413, end: 20110414
  2. CLOTRIMAZOLE [Suspect]
     Dosage: 1 DF, BID
     Route: 061
     Dates: start: 20110413, end: 20110414

REACTIONS (3)
  - ERYTHEMA [None]
  - RASH [None]
  - OEDEMA PERIPHERAL [None]
